FAERS Safety Report 8323237-8 (Version None)
Quarter: 2012Q2

REPORT INFORMATION
  Report Type: 
  Country: None (occurrence: None)
  Receive Date: 20120430
  Receipt Date: 20120420
  Transmission Date: 20120825
  Serious: Yes (Death, Hospitalization, Other)
  Sender: FDA-Public Use
  Company Number: US-CELGENEUS-163-20785-10020982

PATIENT
  Sex: Male

DRUGS (10)
  1. THALOMID [Suspect]
     Dosage: 200 MILLIGRAM
     Route: 048
     Dates: start: 20110601
  2. MELPHALAN HYDROCHLORIDE [Concomitant]
     Route: 065
     Dates: start: 20090829
  3. CYCLOPHOSPHAMIDE [Suspect]
     Route: 065
     Dates: start: 20090829
  4. ETOPOSIDE [Suspect]
     Route: 065
     Dates: start: 20090829
  5. DEXAMETHASONE [Suspect]
     Route: 065
     Dates: start: 20090829
  6. THALOMID [Suspect]
     Dosage: 100 MILLIGRAM
     Route: 048
     Dates: start: 20110701, end: 20110101
  7. ADRIAMYCIN PFS [Suspect]
     Route: 065
     Dates: start: 20090829
  8. THALOMID [Suspect]
     Indication: MULTIPLE MYELOMA
     Dosage: 100 MILLIGRAM
     Route: 048
     Dates: start: 20090901
  9. VELCADE [Suspect]
     Route: 065
     Dates: start: 20090829
  10. THALOMID [Suspect]
     Dosage: 100 MILLIGRAM
     Route: 048
     Dates: start: 20101001

REACTIONS (2)
  - HAEMOPTYSIS [None]
  - RASH PRURITIC [None]
